FAERS Safety Report 8978472 (Version 2)
Quarter: 2013Q1

REPORT INFORMATION
  Report Type: Spontaneous
  Country: US (occurrence: US)
  Receive Date: 20121221
  Receipt Date: 20130211
  Transmission Date: 20140127
  Serious: No
  Sender: FDA-Public Use
  Company Number: US-JNJFOC-20121206562

PATIENT
  Age: 84 Year
  Sex: Male
  Weight: 46.04 kg

DRUGS (9)
  1. SANDOZ FENTANYL TRANSDERMAL SYSTEM [Suspect]
     Indication: NECK PAIN
     Route: 062
     Dates: start: 20121203
  2. SANDOZ FENTANYL TRANSDERMAL SYSTEM [Suspect]
     Indication: BACK PAIN
     Route: 062
     Dates: start: 20121203
  3. LORTAB [Concomitant]
     Indication: PAIN
     Dosage: ONE AND HALF TABLETS OF 5 MG TABLET EVERY 6 HOURS AS NEEDED
     Route: 048
     Dates: start: 201211
  4. TOPROL [Concomitant]
     Indication: BLOOD PRESSURE
     Route: 048
     Dates: start: 2010
  5. PLAQUENIL [Concomitant]
     Indication: SYSTEMIC LUPUS ERYTHEMATOSUS
     Route: 048
     Dates: start: 1988
  6. SYNTHROID [Concomitant]
     Indication: HYPOTHYROIDISM
     Route: 048
  7. EXELON [Concomitant]
     Indication: DEMENTIA
     Route: 062
     Dates: start: 201209
  8. A MULTIVITAMIN [Concomitant]
     Indication: OSTEOPOROSIS
     Route: 048
     Dates: start: 2002
  9. CALCIUM [Concomitant]
     Indication: OSTEOPOROSIS
     Route: 048
     Dates: start: 2002

REACTIONS (4)
  - Drug ineffective [Not Recovered/Not Resolved]
  - Product quality issue [Unknown]
  - Wrong technique in drug usage process [Unknown]
  - Product packaging issue [Unknown]
